FAERS Safety Report 12654510 (Version 1)
Quarter: 2016Q3

REPORT INFORMATION
  Report Type: Spontaneous
  Country: US (occurrence: None)
  Receive Date: 20160815
  Receipt Date: 20160815
  Transmission Date: 20161109
  Serious: Yes (Disabling)
  Sender: FDA-Public Use
  Company Number: None

PATIENT
  Age: 40 Year
  Sex: Female
  Weight: 86.18 kg

DRUGS (1)
  1. KETOROLAC [Suspect]
     Active Substance: KETOROLAC\KETOROLAC TROMETHAMINE
     Indication: MYALGIA
     Route: 030
     Dates: start: 20160807, end: 20160809

REACTIONS (16)
  - Nausea [None]
  - Dizziness [None]
  - Abdominal pain [None]
  - Disturbance in attention [None]
  - Anxiety [None]
  - Chest pain [None]
  - Flatulence [None]
  - Dyspepsia [None]
  - Confusional state [None]
  - Vertigo [None]
  - Hypertension [None]
  - Headache [None]
  - Somnolence [None]
  - Thinking abnormal [None]
  - Nervousness [None]
  - Abnormal dreams [None]

NARRATIVE: CASE EVENT DATE: 20160807
